FAERS Safety Report 11019195 (Version 2)
Quarter: 2015Q2

REPORT INFORMATION
  Report Type: Spontaneous
  Country: US (occurrence: US)
  Receive Date: 20150412
  Receipt Date: 20150525
  Transmission Date: 20150821
  Serious: No
  Sender: FDA-Public Use
  Company Number: US-JNJFOC-20130514522

PATIENT
  Sex: Female

DRUGS (3)
  1. LEVAQUIN [Suspect]
     Active Substance: LEVOFLOXACIN
     Indication: ORAL INFECTION
     Dosage: FOR 14 DAYS
     Route: 048
     Dates: start: 2013, end: 2013
  2. LEVAQUIN [Suspect]
     Active Substance: LEVOFLOXACIN
     Indication: ORAL INFECTION
     Route: 048
     Dates: start: 2013, end: 2013
  3. AMOXICILLIN. [Suspect]
     Active Substance: AMOXICILLIN
     Indication: ORAL INFECTION
     Route: 065

REACTIONS (7)
  - Adverse event [Recovered/Resolved]
  - Joint range of motion decreased [Not Recovered/Not Resolved]
  - Mobility decreased [Not Recovered/Not Resolved]
  - Pain [Not Recovered/Not Resolved]
  - Musculoskeletal pain [Not Recovered/Not Resolved]
  - Tendonitis [Not Recovered/Not Resolved]
  - Oral discharge [Recovered/Resolved]

NARRATIVE: CASE EVENT DATE: 2013
